FAERS Safety Report 7032927-9 (Version None)
Quarter: 2010Q4

REPORT INFORMATION
  Report Type: 
  Country: None (occurrence: None)
  Receive Date: 20101007
  Receipt Date: 20100322
  Transmission Date: 20110411
  Serious: Yes (Other)
  Sender: FDA-Public Use
  Company Number: US-BAYER-200929027NA

PATIENT
  Age: 21 Year
  Sex: Female
  Weight: 111 kg

DRUGS (11)
  1. YAZ [Suspect]
     Indication: PRODUCT USED FOR UNKNOWN INDICATION
     Route: 048
     Dates: start: 20080717, end: 20080828
  2. YASMIN [Suspect]
     Indication: PRODUCT USED FOR UNKNOWN INDICATION
  3. HYDROCODONE [Concomitant]
     Indication: PAIN
     Dates: start: 20080806
  4. ONDANSETRON [Concomitant]
     Route: 048
  5. PENICILLIN VK [Concomitant]
  6. HYDROCODONE BITARTRATE AND ACETAMINOPHEN [Concomitant]
     Dosage: 7.5/500TB
  7. CYCLOBENZAPRINE [Concomitant]
  8. PRILOSEC [Concomitant]
  9. CHANTIX [Concomitant]
     Indication: TOBACCO USER
  10. ALBUTEROL INHALER [Concomitant]
     Indication: BRONCHIAL HYPERREACTIVITY
  11. OMEPRAZOLE [Concomitant]
     Indication: GASTROOESOPHAGEAL REFLUX DISEASE
     Dates: start: 20080801

REACTIONS (12)
  - CHEST PAIN [None]
  - CHOLECYSTECTOMY [None]
  - DEEP VEIN THROMBOSIS [None]
  - DYSPNOEA [None]
  - HYPOAESTHESIA [None]
  - LIMB DISCOMFORT [None]
  - MUSCULOSKELETAL PAIN [None]
  - OEDEMA PERIPHERAL [None]
  - PAIN [None]
  - PAIN IN EXTREMITY [None]
  - PULMONARY EMBOLISM [None]
  - SKIN DISCOLOURATION [None]
